FAERS Safety Report 7670769-1 (Version None)
Quarter: 2011Q3

REPORT INFORMATION
  Report Type: 
  Country: None (occurrence: None)
  Receive Date: 20110809
  Receipt Date: 20110731
  Transmission Date: 20111222
  Serious: Yes (Hospitalization, Other)
  Sender: FDA-Public Use
  Company Number: US-SHIRE-ALL1-2011-02531

PATIENT
  Age: 1 Year
  Sex: Female

DRUGS (1)
  1. VYVANSE [Suspect]
     Indication: PRODUCT USED FOR UNKNOWN INDICATION
     Dosage: UNK, UNKNOWN
     Dates: start: 20110310, end: 20110310

REACTIONS (7)
  - CONVULSION [None]
  - TACHYCARDIA [None]
  - ACCIDENTAL OVERDOSE [None]
  - DYSKINESIA [None]
  - AGITATION [None]
  - MYDRIASIS [None]
  - HYPOTENSION [None]
